FAERS Safety Report 8528403-4 (Version None)
Quarter: 2012Q3

REPORT INFORMATION
  Report Type: 
  Country: None (occurrence: None)
  Receive Date: 20120722
  Receipt Date: 20120717
  Transmission Date: 20120928
  Serious: Yes (Other)
  Sender: FDA-Public Use
  Company Number: PHHY2012PL061208

PATIENT
  Sex: Female
  Weight: 65 kg

DRUGS (1)
  1. METHOTREXATE [Suspect]
     Indication: PSORIATIC ARTHROPATHY
     Dosage: 15 MG, QW
     Route: 048
     Dates: start: 20110501, end: 20111101

REACTIONS (3)
  - ASTHENIA [None]
  - HIRSUTISM [None]
  - ABDOMINAL PAIN [None]
